FAERS Safety Report 12616314 (Version 2)
Quarter: 2016Q3

REPORT INFORMATION
  Report Type: Spontaneous
  Country: CN (occurrence: CN)
  Receive Date: 20160802
  Receipt Date: 20160811
  Transmission Date: 20161109
  Serious: Yes (Death, Hospitalization, Other)
  Sender: FDA-Public Use
  Company Number: CN-APOPHARMA USA, INC.-2016AP010038

PATIENT
  Age: 66 Year
  Sex: Male
  Weight: 65 kg

DRUGS (9)
  1. ALKERAN [Suspect]
     Active Substance: MELPHALAN
     Indication: PLASMA CELL MYELOMA
     Dosage: 12 MG, QD
     Route: 065
     Dates: start: 20101116, end: 20101119
  2. ALKERAN [Suspect]
     Active Substance: MELPHALAN
     Indication: CHEMOTHERAPY
  3. LENALIDOMIDE [Suspect]
     Active Substance: LENALIDOMIDE
     Indication: PLASMA CELL MYELOMA
     Dosage: 10 MG, QD
     Route: 065
     Dates: start: 20100915, end: 201011
  4. THALIDOMIDE [Suspect]
     Active Substance: THALIDOMIDE
     Indication: PLASMA CELL MYELOMA
     Dosage: 200 MG, QD
     Route: 065
     Dates: start: 20110209, end: 20130913
  5. VINCRISTINE [Concomitant]
     Active Substance: VINCRISTINE
     Indication: PLASMA CELL MYELOMA
     Dosage: 0.5 MG, QD
     Route: 065
     Dates: start: 20101116, end: 201101
  6. PIRARUBICIN [Concomitant]
     Active Substance: PIRARUBICIN
     Indication: PLASMA CELL MYELOMA
     Dosage: 10 MG, QD
     Route: 065
     Dates: start: 20101116
  7. BORTEZOMIB [Suspect]
     Active Substance: BORTEZOMIB
     Indication: PLASMA CELL MYELOMA
     Dosage: 2 MG, QD
     Route: 065
     Dates: start: 20100622, end: 201008
  8. DEXAMETHASONE. [Concomitant]
     Active Substance: DEXAMETHASONE
     Indication: PLASMA CELL MYELOMA
     Dosage: 20 MG, QD
     Route: 065
     Dates: start: 20101116, end: 201101
  9. DEXAMETHASONE. [Concomitant]
     Active Substance: DEXAMETHASONE
     Indication: PLASMA CELL MYELOMA
     Dosage: 20 MG, QD
     Route: 065

REACTIONS (1)
  - Lymphocytic leukaemia [Fatal]

NARRATIVE: CASE EVENT DATE: 20130913
